FAERS Safety Report 7525362-8 (Version None)
Quarter: 2011Q2

REPORT INFORMATION
  Report Type: 
  Country: None (occurrence: None)
  Receive Date: 20110526
  Receipt Date: 20110513
  Transmission Date: 20111010
  Serious: Yes (Death, Hospitalization, Other)
  Sender: FDA-Public Use
  Company Number: 2011MA005891

PATIENT
  Age: 25 Year
  Sex: Female

DRUGS (13)
  1. TRAMADOL HCL [Concomitant]
  2. METOCLOPRAMIDE [Concomitant]
  3. SERTRALINE HYDROCHLORIDE [Suspect]
     Dosage: 50 MG;QD
  4. CASPOFUNGIN ACETATE [Concomitant]
  5. PHENIRAMINE [Concomitant]
  6. AMIKASIN [Concomitant]
  7. SANDOSTATIN [Concomitant]
  8. LINEZOLID [Concomitant]
  9. MIDAZOLAM HCL [Concomitant]
  10. RANITIDINE [Concomitant]
  11. MEPERIDINE HCL [Concomitant]
  12. DICLOFENAC SODIUM [Concomitant]
  13. IMIPENEM [Concomitant]

REACTIONS (4)
  - DRUG INTERACTION [None]
  - SEPSIS [None]
  - SEROTONIN SYNDROME [None]
  - INITIAL INSOMNIA [None]
